FAERS Safety Report 4976317-9 (Version None)
Quarter: 2006Q2

REPORT INFORMATION
  Report Type: 
  Country: None (occurrence: None)
  Receive Date: 20060412
  Receipt Date: 20051018
  Transmission Date: 20061013
  Serious: Yes (Other)
  Sender: FDA-Public Use
  Company Number: 2006047226

PATIENT
  Age: 45 Year
  Sex: Female

DRUGS (5)
  1. BEXTRA [Suspect]
     Indication: ARTHRITIS
     Dosage: 10 MG (10 MG, 1 IN 1 D), ORAL
     Route: 048
     Dates: start: 20020306
  2. BEXTRA [Suspect]
     Indication: OEDEMA PERIPHERAL
     Dosage: 10 MG (10 MG, 1 IN 1 D), ORAL
     Route: 048
     Dates: start: 20020306
  3. VIOXX [Suspect]
     Indication: PAIN
     Dosage: ORAL
     Route: 048
     Dates: start: 20000401
  4. PREMARIN [Concomitant]
  5. ANTIHYPERTENSIVES (ANTIHYPERTENSIVES) [Concomitant]

REACTIONS (7)
  - ACUTE SINUSITIS [None]
  - DERMATITIS CONTACT [None]
  - IMPETIGO [None]
  - LOCALISED INFECTION [None]
  - LOCALISED OEDEMA [None]
  - OPEN WOUND [None]
  - PAIN [None]
